FAERS Safety Report 9190658 (Version 1)
Quarter: 2013Q1

REPORT INFORMATION
  Report Type: Spontaneous
  Country: GB (occurrence: GB)
  Receive Date: 20130326
  Receipt Date: 20130326
  Transmission Date: 20140127
  Serious: Yes (Other)
  Sender: FDA-Public Use
  Company Number: GB-UCBSA-081159

PATIENT
  Age: 53 Year
  Sex: Female

DRUGS (1)
  1. TYLEX [Suspect]
     Indication: ANALGESIC THERAPY
     Route: 048
     Dates: start: 2003, end: 2003

REACTIONS (7)
  - Discomfort [Recovered/Resolved]
  - Disorientation [Recovered/Resolved]
  - Dizziness [Recovered/Resolved]
  - Fear [Recovered/Resolved]
  - Feeling abnormal [Recovered/Resolved]
  - Pain [Recovered/Resolved]
  - Nausea [Recovered/Resolved]
